FAERS Safety Report 11239186 (Version 3)
Quarter: 2015Q3

REPORT INFORMATION
  Report Type: Spontaneous
  Country: US (occurrence: US)
  Receive Date: 20150706
  Receipt Date: 20150722
  Transmission Date: 20151125
  Serious: Yes (Hospitalization, Other)
  Sender: FDA-Public Use
  Company Number: US-MERCK-1506USA004818

PATIENT
  Age: 35 Year
  Sex: Male
  Weight: 115 kg

DRUGS (13)
  1. DAPTOMYCIN. [Suspect]
     Active Substance: DAPTOMYCIN
     Dosage: 6.08 MG/KG, QD
     Route: 042
     Dates: start: 20131014, end: 20131026
  2. OPIOIDS [Concomitant]
     Active Substance: UNSPECIFIED INGREDIENT
     Dosage: UNK
     Route: 065
  3. FLAGYL [Concomitant]
     Active Substance: METRONIDAZOLE\METRONIDAZOLE HYDROCHLORIDE
     Dosage: UNK
     Route: 065
     Dates: start: 20130929
  4. LISINOPRIL. [Concomitant]
     Active Substance: LISINOPRIL
     Dosage: UNK
     Route: 065
  5. BETA-BLOCKER [Concomitant]
     Active Substance: UNSPECIFIED INGREDIENT
     Dosage: UNK
     Route: 065
  6. MIDAZOLAM [Concomitant]
     Active Substance: MIDAZOLAM\MIDAZOLAM HYDROCHLORIDE
     Dosage: UNK
     Route: 065
  7. DAPTOMYCIN. [Suspect]
     Active Substance: DAPTOMYCIN
     Indication: OSTEOMYELITIS
     Dosage: 6.08 MG/KG, QD
     Route: 042
     Dates: start: 20131014, end: 20131026
  8. DAPTOMYCIN. [Suspect]
     Active Substance: DAPTOMYCIN
     Dosage: 6.08 MG/KG, QD
     Route: 042
     Dates: start: 20131014, end: 20131026
  9. CEFEPIME [Concomitant]
     Active Substance: CEFEPIME HYDROCHLORIDE
     Dosage: UNK
     Route: 065
     Dates: start: 20130926
  10. INSULIN [Concomitant]
     Active Substance: INSULIN NOS
     Dosage: UNK
     Route: 065
  11. DAPTOMYCIN. [Suspect]
     Active Substance: DAPTOMYCIN
     Dosage: 6.08 MG/KG, QD
     Route: 042
     Dates: start: 20131014, end: 20131026
  12. OMEPRAZOLE. [Concomitant]
     Active Substance: OMEPRAZOLE
     Dosage: UNK
     Route: 065
  13. AZTREONAM. [Concomitant]
     Active Substance: AZTREONAM
     Dosage: UNK
     Route: 065
     Dates: start: 20131014

REACTIONS (11)
  - Somnolence [Recovered/Resolved]
  - Clostridium difficile colitis [Recovered/Resolved]
  - Hypoxia [Recovered/Resolved]
  - Acute interstitial pneumonitis [Recovered/Resolved]
  - Blood creatine phosphokinase increased [Recovered/Resolved]
  - Respiratory distress [Recovered/Resolved]
  - Joint swelling [Recovered/Resolved]
  - Pneumonitis chemical [Recovered/Resolved]
  - Pyrexia [Recovered/Resolved]
  - Organising pneumonia [Recovered/Resolved]
  - Arthralgia [Recovered/Resolved]

NARRATIVE: CASE EVENT DATE: 20131025
